FAERS Safety Report 6888005-2 (Version None)
Quarter: 2010Q3

REPORT INFORMATION
  Report Type: 
  Country: None (occurrence: None)
  Receive Date: 20100730
  Receipt Date: 20100726
  Transmission Date: 20110219
  Serious: Yes (Congenital Anomaly)
  Sender: FDA-Public Use
  Company Number: A0872568A

PATIENT
  Sex: Female

DRUGS (6)
  1. COMBIVIR [Suspect]
     Indication: HIV INFECTION
     Dates: start: 20021031, end: 20021219
  2. VIDEX [Suspect]
     Indication: HIV INFECTION
     Dates: start: 20020807, end: 20021030
  3. VIRAMUNE [Suspect]
     Indication: HIV INFECTION
     Dates: start: 20021031, end: 20021216
  4. METRONIDAZOLE [Concomitant]
  5. DEXAMETHASONE [Concomitant]
  6. IRON PREPARATION [Concomitant]

REACTIONS (2)
  - CONGENITAL HYDRONEPHROSIS [None]
  - DRUG EXPOSURE DURING PREGNANCY [None]
